FAERS Safety Report 15425663 (Version 8)
Quarter: 2019Q2

REPORT INFORMATION
  Report Type: Spontaneous
  Country: CA (occurrence: CA)
  Receive Date: 20180925
  Receipt Date: 20190605
  Transmission Date: 20190711
  Serious: Yes (Hospitalization, Other)
  Sender: FDA-Public Use
  Company Number: CA-PFIZER INC-2018386636

PATIENT
  Age: 49 Year
  Sex: Female

DRUGS (11)
  1. CODEINE [Suspect]
     Active Substance: CODEINE
     Dosage: UNK
     Route: 065
  2. MAGNESIUM [Concomitant]
     Active Substance: MAGNESIUM
     Dosage: UNK
     Dates: start: 201902
  3. TEMODAL [Suspect]
     Active Substance: TEMOZOLOMIDE
     Dosage: 335 MG, QD (PER 5 DAYS PER MONTH)
     Route: 065
     Dates: start: 201606, end: 2018
  4. DOMPERIDONE [Concomitant]
     Active Substance: DOMPERIDONE
     Indication: DYSPEPSIA
     Dosage: 10 MG, 1 TABLET/3 TIMES A DAY BEFORE MEALS
     Dates: start: 201707
  5. PANTOPRAZOLE [Suspect]
     Active Substance: PANTOPRAZOLE
     Dosage: 40 MG, 2X/DAY (BID)
     Route: 065
     Dates: start: 201706
  6. SANDOSTATIN LAR DEPOT [Suspect]
     Active Substance: OCTREOTIDE ACETATE
     Indication: CARCINOID TUMOUR
     Dosage: 30 MG, MONTHLY (Q4WEEKS)
     Route: 030
     Dates: start: 20151209
  7. SANDOSTATIN LAR DEPOT [Suspect]
     Active Substance: OCTREOTIDE ACETATE
     Dosage: UNK
     Route: 030
     Dates: start: 20181010
  8. SULFATRIM [Concomitant]
     Active Substance: SULFAMETHOXAZOLE\TRIMETHOPRIM
     Dosage: UNK
     Dates: end: 2016
  9. MORPHINE SULFATE. [Suspect]
     Active Substance: MORPHINE SULFATE
     Dosage: UNK
     Route: 065
  10. DEXILANT [Concomitant]
     Active Substance: DEXLANSOPRAZOLE
     Dosage: UNK MG, UNK
  11. PANTOPRAZOLE [Suspect]
     Active Substance: PANTOPRAZOLE
     Dosage: 1 DF, DAILY

REACTIONS (33)
  - Nausea [Unknown]
  - Headache [Unknown]
  - Carcinoid tumour [Not Recovered/Not Resolved]
  - Decreased immune responsiveness [Unknown]
  - Hypotension [Unknown]
  - Stress [Unknown]
  - Erythema nodosum [Unknown]
  - Mood altered [Unknown]
  - Nasopharyngitis [Unknown]
  - Back pain [Recovering/Resolving]
  - Heart rate decreased [Unknown]
  - Injection site pain [Unknown]
  - Dehydration [Unknown]
  - Myocardial infarction [Unknown]
  - Neoplasm progression [Recovering/Resolving]
  - Gait disturbance [Unknown]
  - Pain [Unknown]
  - Psychiatric symptom [Unknown]
  - Gastritis fungal [Unknown]
  - Discomfort [Unknown]
  - Body temperature decreased [Unknown]
  - Oropharyngeal pain [Unknown]
  - Bronchial disorder [Unknown]
  - Feeling hot [Unknown]
  - Musculoskeletal pain [Recovered/Resolved]
  - Nausea [Recovered/Resolved]
  - Blood pressure systolic decreased [Unknown]
  - Cough [Unknown]
  - Influenza [Unknown]
  - Needle issue [Unknown]
  - Alopecia [Unknown]
  - Fatigue [Unknown]
  - Contusion [Recovered/Resolved]

NARRATIVE: CASE EVENT DATE: 201601
